FAERS Safety Report 11287559 (Version 1)
Quarter: 2015Q3

REPORT INFORMATION
  Report Type: Spontaneous
  Country: AU (occurrence: AU)
  Receive Date: 20150721
  Receipt Date: 20150721
  Transmission Date: 20151125
  Serious: Yes (Other)
  Sender: FDA-Public Use
  Company Number: AU-ELI_LILLY_AND_COMPANY-AU201507003751

PATIENT
  Sex: Female

DRUGS (5)
  1. SUBUTEX [Suspect]
     Active Substance: BUPRENORPHINE HYDROCHLORIDE
     Indication: PRODUCT USED FOR UNKNOWN INDICATION
     Dosage: UNK, UNKNOWN
     Route: 065
     Dates: start: 2014
  2. ZYPREXA RELPREVV [Suspect]
     Active Substance: OLANZAPINE PAMOATE
     Indication: SCHIZOPHRENIA
     Dosage: 300 MG, 2/M
     Route: 030
     Dates: start: 2003, end: 2013
  3. ZYPREXA RELPREVV [Suspect]
     Active Substance: OLANZAPINE PAMOATE
     Dosage: 300 MG, 2/M
     Route: 030
     Dates: start: 2014, end: 201504
  4. VALIUM [Concomitant]
     Active Substance: DIAZEPAM
     Dosage: UNK, UNKNOWN
     Route: 065
     Dates: start: 2014
  5. ZYPREXA [Suspect]
     Active Substance: OLANZAPINE
     Indication: SCHIZOPHRENIA
     Dosage: 10 MG, BID
     Route: 048
     Dates: start: 2003

REACTIONS (10)
  - Cardiac failure [Unknown]
  - Joint stiffness [Unknown]
  - Pollakiuria [Not Recovered/Not Resolved]
  - Skin discolouration [Unknown]
  - Insomnia [Unknown]
  - Muscle twitching [Not Recovered/Not Resolved]
  - Musculoskeletal stiffness [Recovered/Resolved]
  - Drug ineffective [Unknown]
  - Menstruation irregular [Recovered/Resolved]
  - Renal impairment [Unknown]
